FAERS Safety Report 5629886-X (Version None)
Quarter: 2008Q1

REPORT INFORMATION
  Report Type: 
  Country: None (occurrence: None)
  Receive Date: 20080218
  Receipt Date: 20080208
  Transmission Date: 20080703
  Serious: Yes (Hospitalization)
  Sender: FDA-Public Use
  Company Number: PHHY2008JP01599

PATIENT
  Age: 79 Year
  Sex: Male

DRUGS (9)
  1. DIOVAN [Suspect]
     Indication: HYPERTENSION
     Dosage: 20 MG, QD
     Dates: start: 20071006, end: 20071110
  2. ALDOMET [Concomitant]
     Indication: HYPERTENSION
     Dosage: 500 MG, UNK
     Dates: start: 20070806
  3. LASIX [Concomitant]
     Indication: HYPERTENSION
     Dosage: 100 MG, UNK
     Dates: start: 20070806
  4. LOPRESSOR [Concomitant]
     Indication: HYPERTENSION
     Dosage: 20 MG, UNK
     Route: 048
     Dates: start: 20070806
  5. ZYLORIC [Concomitant]
     Dosage: 50 MG, UNK
     Route: 048
     Dates: start: 20070806
  6. PLETAL [Concomitant]
     Dosage: 200 MG, UNK
     Route: 048
     Dates: start: 20070806
  7. TAKEPRON [Concomitant]
  8. AMLODIN [Concomitant]
     Indication: HYPERTENSION
     Dosage: 10 MG, UNK
     Dates: start: 20070806
  9. HAEMODIALYSIS [Concomitant]
     Dates: start: 20071107, end: 20071123

REACTIONS (1)
  - RENAL ARTERY STENOSIS [None]
